FAERS Safety Report 17306748 (Version 2)
Quarter: 2020Q3

REPORT INFORMATION
  Report Type: Spontaneous
  Country: CA (occurrence: CA)
  Receive Date: 20200123
  Receipt Date: 20200717
  Transmission Date: 20201102
  Serious: Yes (Life-Threatening, Hospitalization, Other)
  Sender: FDA-Public Use
  Company Number: CA-ACCORD-170371

PATIENT
  Age: 68 Year
  Sex: Female
  Weight: 77 kg

DRUGS (22)
  1. CARBOPLATIN. [Suspect]
     Active Substance: CARBOPLATIN
     Indication: BREAST CANCER
     Route: 042
  2. TRASTUZUMAB. [Suspect]
     Active Substance: TRASTUZUMAB
     Indication: BREAST CANCER FEMALE
     Route: 042
  3. ADALAT XL ? SRT [Concomitant]
  4. VITAMIN B12 [Concomitant]
     Active Substance: CYANOCOBALAMIN
  5. ERGOCALCIFEROL. [Concomitant]
     Active Substance: ERGOCALCIFEROL
  6. DOCETAXEL. [Suspect]
     Active Substance: DOCETAXEL
     Indication: BREAST CANCER
     Route: 042
  7. HERCEPTIN [Suspect]
     Active Substance: TRASTUZUMAB
     Indication: BREAST CANCER
     Route: 042
  8. PARIET [Concomitant]
     Active Substance: RABEPRAZOLE SODIUM
  9. ZANTAC [Concomitant]
     Active Substance: RANITIDINE HYDROCHLORIDE
  10. NIFEDIPINE. [Concomitant]
     Active Substance: NIFEDIPINE
  11. ATACAND [Concomitant]
     Active Substance: CANDESARTAN CILEXETIL
  12. VENLAFAXINE [Concomitant]
     Active Substance: VENLAFAXINE HYDROCHLORIDE
  13. CIPRALEX [Concomitant]
     Active Substance: ESCITALOPRAM OXALATE
  14. ATORVASTATIN [Concomitant]
     Active Substance: ATORVASTATIN
  15. CYANOCOBALAMIN/CYANOCOBALAMIN ZINC TANNATE/CYANOCOBALAMIN?TANNIN COMPLEX [Concomitant]
     Active Substance: CYANOCOBALAMIN
  16. CLONAZEPAM. [Concomitant]
     Active Substance: CLONAZEPAM
  17. ASPIRIN. [Concomitant]
     Active Substance: ASPIRIN
  18. EFFEXOR [Concomitant]
     Active Substance: VENLAFAXINE HYDROCHLORIDE
  19. METFORMIN [Concomitant]
     Active Substance: METFORMIN HYDROCHLORIDE
  20. MINOCIN [Concomitant]
     Active Substance: MINOCYCLINE HYDROCHLORIDE
  21. OMEGA 3 SELECT [Concomitant]
     Active Substance: FISH OIL
  22. VITAMIN D [Concomitant]
     Active Substance: VITAMIN D NOS

REACTIONS (6)
  - Acute respiratory distress syndrome [Recovering/Resolving]
  - Pneumonia [Recovering/Resolving]
  - Respiratory distress [Recovering/Resolving]
  - Pyrexia [Recovering/Resolving]
  - Barotrauma [Recovering/Resolving]
  - Dyspnoea [Recovering/Resolving]
